FAERS Safety Report 8966445 (Version 1)
Quarter: 2012Q4

REPORT INFORMATION
  Report Type: 
  Country: IT (occurrence: IT)
  Receive Date: 20121214
  Receipt Date: 20121214
  Transmission Date: 20130627
  Serious: Yes (Hospitalization)
  Sender: FDA-Public Use
  Company Number: IT-GLAXOSMITHKLINE-B0852466A

PATIENT
  Age: 89 Year
  Sex: Female

DRUGS (12)
  1. ACICLOVIR [Suspect]
     Indication: HERPES ZOSTER
     Route: 048
     Dates: start: 20121201, end: 20121205
  2. CO-EFFERALGAN [Concomitant]
  3. LASIX [Concomitant]
  4. ZYLORIC [Concomitant]
  5. EUTIROX [Concomitant]
     Indication: DIABETES MELLITUS
  6. HUMALOG [Concomitant]
  7. LANTUS [Concomitant]
  8. CLEXANE [Concomitant]
  9. CATAPRESAN [Concomitant]
  10. OMEPRAZOLE [Concomitant]
  11. QUETIAPINE [Concomitant]
  12. CETIRIZINE [Concomitant]

REACTIONS (1)
  - Renal failure [Recovering/Resolving]
